FAERS Safety Report 8269766-7 (Version None)
Quarter: 2012Q1

REPORT INFORMATION
  Report Type: 
  Country: None (occurrence: None)
  Receive Date: 20120327
  Receipt Date: 20090821
  Transmission Date: 20120608
  Serious: Yes (Life-Threatening, Hospitalization)
  Sender: FDA-Public Use
  Company Number: PHEH2009US09875

PATIENT
  Sex: Female

DRUGS (1)
  1. GLEEVEC [Suspect]
     Indication: CHRONIC MYELOID LEUKAEMIA

REACTIONS (5)
  - OEDEMA PERIPHERAL [None]
  - EYE OEDEMA [None]
  - DRUG INEFFECTIVE [None]
  - RESPIRATORY ARREST [None]
  - NAUSEA [None]
